FAERS Safety Report 4666991-9 (Version None)
Quarter: 2005Q2

REPORT INFORMATION
  Report Type: 
  Country: None (occurrence: None)
  Receive Date: 20050518
  Receipt Date: 20040512
  Transmission Date: 20051028
  Serious: Yes (Hospitalization)
  Sender: FDA-Public Use
  Company Number: PHEH2004US05259

PATIENT
  Age: 35 Year
  Sex: Female

DRUGS (2)
  1. TEGRETOL-XR [Suspect]
     Indication: CONVULSION
     Dosage: 600 MG, BID, ORAL
     Route: 048
  2. PHENYTOIN [Suspect]
     Indication: CONVULSION
     Dosage: 300 MG, BID, ORAL
     Route: 048

REACTIONS (3)
  - CONVULSION [None]
  - DRUG LEVEL DECREASED [None]
  - TREATMENT NONCOMPLIANCE [None]
